FAERS Safety Report 5650471-8 (Version None)
Quarter: 2008Q1

REPORT INFORMATION
  Report Type: 
  Country: None (occurrence: None)
  Receive Date: 20080304
  Receipt Date: 20080304
  Transmission Date: 20080703
  Serious: Yes (Hospitalization)
  Sender: FDA-Public Use
  Company Number: None

PATIENT
  Sex: Female
  Weight: 113.3993 kg

DRUGS (2)
  1. BEVACIZUMAB [Suspect]
     Indication: RECTAL CANCER
     Dosage: 5MG/KG Q14 DAYSIV
     Route: 042
     Dates: start: 20070904, end: 20071009
  2. OXALIPLATIN [Suspect]
     Indication: RECTAL CANCER
     Dosage: 85MG/M2 WEEKLYIV
     Route: 042
     Dates: start: 20070904, end: 20071009

REACTIONS (2)
  - DEEP VEIN THROMBOSIS [None]
  - EMBOLISM [None]
